FAERS Safety Report 26143790 (Version 1)
Quarter: 2025Q4

REPORT INFORMATION
  Report Type: Spontaneous
  Country: CA (occurrence: CA)
  Receive Date: 20251211
  Receipt Date: 20251211
  Transmission Date: 20260118
  Serious: Yes (Death, Life-Threatening, Hospitalization, Disabling, Other)
  Sender: Haleon PLC
  Company Number: CA-HALEON-2278358

PATIENT
  Age: 44 Year
  Sex: Female

DRUGS (302)
  1. DICLOFENAC [Suspect]
     Active Substance: DICLOFENAC
     Indication: Product used for unknown indication
     Dosage: ROUTE: UNKNOWN
  2. ACTEMRA [Suspect]
     Active Substance: TOCILIZUMAB
     Indication: Product used for unknown indication
     Dosage: ROUTE: UNKNOWN
  3. ALENDRONATE SODIUM [Suspect]
     Active Substance: ALENDRONATE SODIUM
     Indication: Product used for unknown indication
     Dosage: ROUTE: UNKNOWN
  4. CELEBREX [Suspect]
     Active Substance: CELECOXIB
     Indication: Product used for unknown indication
     Dosage: ROUTE: UNKNOWN
  5. CETIRIZINE HYDROCHLORIDE [Suspect]
     Active Substance: CETIRIZINE HYDROCHLORIDE
     Indication: Product used for unknown indication
     Dosage: ROUTE: UNKNOWN
  6. HUMIRA [Suspect]
     Active Substance: ADALIMUMAB
     Indication: Rheumatoid arthritis
  7. HUMIRA [Suspect]
     Active Substance: ADALIMUMAB
     Indication: Psoriatic arthropathy
  8. HUMIRA [Suspect]
     Active Substance: ADALIMUMAB
  9. HUMIRA [Suspect]
     Active Substance: ADALIMUMAB
  10. HYDROCORTISONE ACETATE [Suspect]
     Active Substance: HYDROCORTISONE ACETATE
     Indication: Product used for unknown indication
     Dosage: ROUTE: UNKNOWN
  11. HYDROCORTISONE BUTYRATE [Suspect]
     Active Substance: HYDROCORTISONE BUTYRATE
     Indication: Rheumatoid arthritis
  12. HYDROCORTISONE BUTYRATE [Suspect]
     Active Substance: HYDROCORTISONE BUTYRATE
     Dosage: ROUTE: OTHER
  13. HYDROCORTISONE BUTYRATE [Suspect]
     Active Substance: HYDROCORTISONE BUTYRATE
  14. HYDROCORTISONE SODIUM SUCCINATE [Suspect]
     Active Substance: HYDROCORTISONE SODIUM SUCCINATE
     Indication: Rheumatoid arthritis
     Dosage: ROUTE: UNKNOWN
  15. HYDROCORTISONE SODIUM SUCCINATE [Suspect]
     Active Substance: HYDROCORTISONE SODIUM SUCCINATE
     Indication: Rheumatoid arthritis
     Dosage: DOSE FORM: POWDER FOR SOLUTION
  16. HYDROXYCHLOROQUINE [Suspect]
     Active Substance: HYDROXYCHLOROQUINE
     Indication: Rheumatoid arthritis
     Dosage: ROUTE: UNKNOWN
  17. HYDROXYCHLOROQUINE [Suspect]
     Active Substance: HYDROXYCHLOROQUINE
  18. HYDROXYCHLOROQUINE [Suspect]
     Active Substance: HYDROXYCHLOROQUINE
     Dosage: ROUTE: UNKNOWN
  19. HYDROXYCHLOROQUINE [Suspect]
     Active Substance: HYDROXYCHLOROQUINE
  20. HYDROXYCHLOROQUINE [Suspect]
     Active Substance: HYDROXYCHLOROQUINE
  21. HYDROXYCHLOROQUINE [Suspect]
     Active Substance: HYDROXYCHLOROQUINE
     Dosage: ROUTE: UNKNOWN
  22. HYDROXYCHLOROQUINE [Suspect]
     Active Substance: HYDROXYCHLOROQUINE
  23. HYDROXYCHLOROQUINE [Suspect]
     Active Substance: HYDROXYCHLOROQUINE
     Dosage: ROUTE: UNKNOWN
  24. INFLIXIMAB [Suspect]
     Active Substance: INFLIXIMAB
     Indication: Rheumatoid arthritis
     Dosage: ROUTE: INTRAVENOUS DRIP
  25. INFLIXIMAB [Suspect]
     Active Substance: INFLIXIMAB
     Indication: Psoriatic arthropathy
  26. INFLIXIMAB [Suspect]
     Active Substance: INFLIXIMAB
     Indication: Rheumatoid arthritis
     Dosage: INTRAVENOUS DRIP
  27. INFLIXIMAB [Suspect]
     Active Substance: INFLIXIMAB
     Indication: Psoriatic arthropathy
     Dosage: ROUTE: UNKNOWN
  28. INFLIXIMAB [Suspect]
     Active Substance: INFLIXIMAB
     Dosage: INTRAVENOUS DRIP
  29. INFLIXIMAB [Suspect]
     Active Substance: INFLIXIMAB
     Dosage: ROUTE: UNKNOWN
  30. ISOPROPYL ALCOHOL [Suspect]
     Active Substance: ISOPROPYL ALCOHOL
     Indication: Product used for unknown indication
     Dosage: DOSE FORM: LIQUID TOPICAL, ROUTE: UNKNOWN
  31. MESALAMINE [Suspect]
     Active Substance: MESALAMINE
     Indication: Product used for unknown indication
     Dosage: DOSE FORM: TABLET (DELAYED AND EXTENDED RELEASE), ROUTE: UNKNOWN
  32. NAPROXEN [Suspect]
     Active Substance: NAPROXEN
     Indication: Product used for unknown indication
     Dosage: ROUTE: UNKNOWN
  33. NAPROXEN SODIUM [Suspect]
     Active Substance: NAPROXEN SODIUM
     Indication: Rheumatoid arthritis
     Dosage: ROUTE: UNKNOWN
  34. NAPROXEN SODIUM [Suspect]
     Active Substance: NAPROXEN SODIUM
     Dosage: ROUTE: UNKNOWN
  35. NEOMYCIN [Suspect]
     Active Substance: NEOMYCIN
     Indication: Product used for unknown indication
     Dosage: ROUTE: UNKNOWN
  36. ORENCIA [Suspect]
     Active Substance: ABATACEPT
     Indication: Rheumatoid arthritis
  37. ORENCIA [Suspect]
     Active Substance: ABATACEPT
     Indication: Psoriatic arthropathy
  38. ORENCIA [Suspect]
     Active Substance: ABATACEPT
     Indication: Rheumatoid arthritis
  39. ORENCIA [Suspect]
     Active Substance: ABATACEPT
     Indication: Psoriatic arthropathy
  40. ORENCIA [Suspect]
     Active Substance: ABATACEPT
  41. ORENCIA [Suspect]
     Active Substance: ABATACEPT
  42. ORENCIA [Suspect]
     Active Substance: ABATACEPT
  43. ORENCIA [Suspect]
     Active Substance: ABATACEPT
  44. DICLOFENAC [Suspect]
     Active Substance: DICLOFENAC
     Indication: Product used for unknown indication
     Dosage: ROUTE: UNKNOWN
  45. DICLOFENAC POTASSIUM [Suspect]
     Active Substance: DICLOFENAC POTASSIUM
     Indication: Product used for unknown indication
     Dosage: ROUTE: OTHER
  46. DICLOFENAC POTASSIUM [Suspect]
     Active Substance: DICLOFENAC POTASSIUM
  47. DICLOFENAC POTASSIUM [Suspect]
     Active Substance: DICLOFENAC POTASSIUM
  48. DICLOFENAC POTASSIUM [Suspect]
     Active Substance: DICLOFENAC POTASSIUM
     Dosage: ROUTE: UNKNOWN
  49. ADVIL [Suspect]
     Active Substance: IBUPROFEN
     Indication: Product used for unknown indication
     Dosage: ROUTE: UNKNOWN
  50. ACETAMINOPHEN [Suspect]
     Active Substance: ACETAMINOPHEN
     Indication: Product used for unknown indication
     Dosage: DOSE FORM: UNKNOWN, ROUTE: UNKNOWN
  51. ACETAMINOPHEN [Suspect]
     Active Substance: ACETAMINOPHEN
     Dosage: ROUTE: UNKNOWN
  52. ACETAMINOPHEN\CAFFEINE\CODEINE PHOSPHATE [Suspect]
     Active Substance: ACETAMINOPHEN\CAFFEINE\CODEINE PHOSPHATE
     Indication: Product used for unknown indication
     Dosage: ROUTE: UNKNOWN
  53. ALENDRONATE SODIUM [Suspect]
     Active Substance: ALENDRONATE SODIUM
     Indication: Product used for unknown indication
     Dosage: ROUTE: UNKNOWN
  54. BORAGE OIL [Suspect]
     Active Substance: BORAGE OIL
     Indication: Product used for unknown indication
     Dosage: ROUTE: UNKNOWN
  55. COSENTYX [Suspect]
     Active Substance: SECUKINUMAB
     Indication: Product used for unknown indication
  56. COSENTYX [Suspect]
     Active Substance: SECUKINUMAB
     Indication: Product used for unknown indication
     Dosage: ROUTE: UNKNOWN
  57. DESOXIMETASONE [Suspect]
     Active Substance: DESOXIMETASONE
     Indication: Product used for unknown indication
     Dosage: ROUTE: UNKNOWN
  58. DEXTROMETHORPHAN HYDROBROMIDE\PSEUDOEPHEDRINE HYDROCHLORIDE\TRIPROLIDI [Suspect]
     Active Substance: DEXTROMETHORPHAN HYDROBROMIDE\PSEUDOEPHEDRINE HYDROCHLORIDE\TRIPROLIDINE HYDROCHLORIDE
     Indication: Product used for unknown indication
     Dosage: ROUTE: UNKNOWN
  59. HUMIRA [Suspect]
     Active Substance: ADALIMUMAB
     Indication: Rheumatoid arthritis
     Dosage: DOSE FORM: SOLUTION SUBCUTANEOUS
  60. HUMIRA [Suspect]
     Active Substance: ADALIMUMAB
     Indication: Psoriatic arthropathy
  61. HYDROXYCHLOROQUINE SULFATE [Suspect]
     Active Substance: HYDROXYCHLOROQUINE SULFATE
     Indication: Systemic lupus erythematosus
  62. HYDROXYCHLOROQUINE SULFATE [Suspect]
     Active Substance: HYDROXYCHLOROQUINE SULFATE
     Indication: Rheumatoid arthritis
  63. HYDROXYCHLOROQUINE SULFATE [Suspect]
     Active Substance: HYDROXYCHLOROQUINE SULFATE
     Dosage: ROUTE: UNKNOWN
  64. HYDROXYCHLOROQUINE SULFATE [Suspect]
     Active Substance: HYDROXYCHLOROQUINE SULFATE
     Dosage: ROUTE: UNKNOWN
  65. HYDROXYCHLOROQUINE SULFATE [Suspect]
     Active Substance: HYDROXYCHLOROQUINE SULFATE
  66. HYDROXYCHLOROQUINE SULFATE [Suspect]
     Active Substance: HYDROXYCHLOROQUINE SULFATE
  67. HYDROXYCHLOROQUINE SULFATE [Suspect]
     Active Substance: HYDROXYCHLOROQUINE SULFATE
  68. HYDROXYCHLOROQUINE SULFATE [Suspect]
     Active Substance: HYDROXYCHLOROQUINE SULFATE
     Dosage: ROUTE: UNKNOWN
  69. HYDROXYCHLOROQUINE SULFATE [Suspect]
     Active Substance: HYDROXYCHLOROQUINE SULFATE
     Dosage: ROUTE: UNKNOWN
  70. HYDROXYCHLOROQUINE SULFATE [Suspect]
     Active Substance: HYDROXYCHLOROQUINE SULFATE
     Dosage: ROUTE: UNKNOWN
  71. HYDROXYCHLOROQUINE SULFATE [Suspect]
     Active Substance: HYDROXYCHLOROQUINE SULFATE
     Dosage: ROUTE: UNKNOWN
  72. HYDROXYCHLOROQUINE SULFATE [Suspect]
     Active Substance: HYDROXYCHLOROQUINE SULFATE
  73. HYDROXYCHLOROQUINE SULFATE [Suspect]
     Active Substance: HYDROXYCHLOROQUINE SULFATE
  74. HYDROXYCHLOROQUINE SULFATE [Suspect]
     Active Substance: HYDROXYCHLOROQUINE SULFATE
  75. HYDROXYCHLOROQUINE SULFATE [Suspect]
     Active Substance: HYDROXYCHLOROQUINE SULFATE
  76. HYDROXYCHLOROQUINE SULFATE [Suspect]
     Active Substance: HYDROXYCHLOROQUINE SULFATE
     Dosage: ROUTE: UNKNOWN
  77. HYDROXYCHLOROQUINE SULFATE [Suspect]
     Active Substance: HYDROXYCHLOROQUINE SULFATE
  78. HYDROXYCHLOROQUINE SULFATE [Suspect]
     Active Substance: HYDROXYCHLOROQUINE SULFATE
  79. HYDROXYCHLOROQUINE SULFATE [Suspect]
     Active Substance: HYDROXYCHLOROQUINE SULFATE
     Dosage: ROUTE: UNKNOWN
  80. HYDROXYCHLOROQUINE SULFATE [Suspect]
     Active Substance: HYDROXYCHLOROQUINE SULFATE
  81. HYDROXYCHLOROQUINE SULFATE [Suspect]
     Active Substance: HYDROXYCHLOROQUINE SULFATE
     Dosage: ROUTE: UNKNOWN
  82. HYDROXYCHLOROQUINE SULFATE [Suspect]
     Active Substance: HYDROXYCHLOROQUINE SULFATE
  83. LISINOPRIL [Suspect]
     Active Substance: LISINOPRIL
     Indication: Product used for unknown indication
     Dosage: ROUTE: UNKNOWN
  84. LYRICA [Suspect]
     Active Substance: PREGABALIN
     Indication: Product used for unknown indication
     Dosage: ROUTE: UNKNOWN
  85. METHYLPREDNISOLONE SODIUM SUCCINATE [Suspect]
     Active Substance: METHYLPREDNISOLONE SODIUM SUCCINATE
     Indication: Product used for unknown indication
     Dosage: ROUTE: UNKNOWN
  86. OTEZLA [Suspect]
     Active Substance: APREMILAST
     Indication: Product used for unknown indication
     Dosage: ROUTE: UNKNOWN
  87. OXYCODONE [Suspect]
     Active Substance: OXYCODONE
     Indication: Product used for unknown indication
     Dosage: DOSE FORM: UNKNOWN, ROUTE: UNKNOWN
  88. OXYCODONE [Suspect]
     Active Substance: OXYCODONE
     Dosage: DOSE FORM: UNKNOWN
  89. OXYCODONE [Suspect]
     Active Substance: OXYCODONE
     Dosage: ROUTE: UNKNOWN
  90. OXYCODONE [Suspect]
     Active Substance: OXYCODONE
     Dosage: DOSE FORM: UNKNOWN, ROUTE: UNKNOWN
  91. OXYCODONE TEREPHTHALATE [Suspect]
     Active Substance: OXYCODONE TEREPHTHALATE
     Indication: Product used for unknown indication
     Dosage: ROUTE: UNKNOWN
  92. PERIOGARD [Suspect]
     Active Substance: CHLORHEXIDINE GLUCONATE
     Indication: Product used for unknown indication
  93. PERIOGARD [Suspect]
     Active Substance: CHLORHEXIDINE GLUCONATE
     Dosage: ROUTE: UNKNOWN
  94. PERIOGARD [Suspect]
     Active Substance: CHLORHEXIDINE GLUCONATE
     Dosage: ROUTE: UNKNOWN
  95. PERIOGARD [Suspect]
     Active Substance: CHLORHEXIDINE GLUCONATE
  96. METHOTREXATE [Suspect]
     Active Substance: METHOTREXATE
     Indication: Rheumatoid arthritis
  97. METHOTREXATE [Suspect]
     Active Substance: METHOTREXATE
  98. METHOTREXATE [Suspect]
     Active Substance: METHOTREXATE
     Dosage: ROUTE: UNKNOWN
  99. METHOTREXATE [Suspect]
     Active Substance: METHOTREXATE
  100. METHOTREXATE [Suspect]
     Active Substance: METHOTREXATE
  101. METHOTREXATE [Suspect]
     Active Substance: METHOTREXATE
     Dosage: ROUTE: UNKNOWN
  102. METHOTREXATE [Suspect]
     Active Substance: METHOTREXATE
  103. METHOTREXATE [Suspect]
     Active Substance: METHOTREXATE
  104. METHOTREXATE [Suspect]
     Active Substance: METHOTREXATE
     Dosage: ROUTE: UNKNOWN
  105. METHOTREXATE [Suspect]
     Active Substance: METHOTREXATE
  106. METHOTREXATE [Suspect]
     Active Substance: METHOTREXATE
  107. METHOTREXATE [Suspect]
     Active Substance: METHOTREXATE
  108. METHOTREXATE [Suspect]
     Active Substance: METHOTREXATE
     Dosage: ROUTE: INTRAVENOUS DRIP
  109. METHOTREXATE [Suspect]
     Active Substance: METHOTREXATE
  110. METHOTREXATE [Suspect]
     Active Substance: METHOTREXATE
  111. METHOTREXATE [Suspect]
     Active Substance: METHOTREXATE
  112. METHOTREXATE [Suspect]
     Active Substance: METHOTREXATE
     Dosage: ROUTE: UNKNOWN
  113. METHOTREXATE [Suspect]
     Active Substance: METHOTREXATE
  114. METHOTREXATE [Suspect]
     Active Substance: METHOTREXATE
  115. METHOTREXATE [Suspect]
     Active Substance: METHOTREXATE
  116. METHOTREXATE [Suspect]
     Active Substance: METHOTREXATE
  117. METHOTREXATE [Suspect]
     Active Substance: METHOTREXATE
  118. METHOTREXATE [Suspect]
     Active Substance: METHOTREXATE
  119. METHOTREXATE [Suspect]
     Active Substance: METHOTREXATE
  120. METHOTREXATE [Suspect]
     Active Substance: METHOTREXATE
  121. METHOTREXATE [Suspect]
     Active Substance: METHOTREXATE
  122. METHOTREXATE [Suspect]
     Active Substance: METHOTREXATE
  123. METHOTREXATE [Suspect]
     Active Substance: METHOTREXATE
  124. METHOTREXATE [Suspect]
     Active Substance: METHOTREXATE
  125. METHOTREXATE [Suspect]
     Active Substance: METHOTREXATE
  126. METHOTREXATE [Suspect]
     Active Substance: METHOTREXATE
     Dosage: ROUTE: UNKNOWN
  127. METHOTREXATE [Suspect]
     Active Substance: METHOTREXATE
  128. METHOTREXATE [Suspect]
     Active Substance: METHOTREXATE
  129. METHOTREXATE [Suspect]
     Active Substance: METHOTREXATE
  130. METHOTREXATE [Suspect]
     Active Substance: METHOTREXATE
  131. METHOTREXATE [Suspect]
     Active Substance: METHOTREXATE
  132. METHOTREXATE [Suspect]
     Active Substance: METHOTREXATE
  133. METHOTREXATE [Suspect]
     Active Substance: METHOTREXATE
     Dosage: ROUTE: UNKNOWN
  134. METHOTREXATE [Suspect]
     Active Substance: METHOTREXATE
     Dosage: ROUTE: UNKNOWN
  135. METHOTREXATE [Suspect]
     Active Substance: METHOTREXATE
     Dosage: ROUTE: INTRAVENOUS DRIP
  136. METHOTREXATE [Suspect]
     Active Substance: METHOTREXATE
  137. METHOTREXATE [Suspect]
     Active Substance: METHOTREXATE
  138. RAMIPRIL [Suspect]
     Active Substance: RAMIPRIL
     Indication: Product used for unknown indication
     Dosage: ROUTE: UNKNOWN
  139. RAMIPRIL [Suspect]
     Active Substance: RAMIPRIL
     Dosage: ROUTE: UNKNOWN
  140. RITUXIMAB [Suspect]
     Active Substance: RITUXIMAB
     Indication: Rheumatoid arthritis
     Dosage: ROUTE: UNKNOWN
  141. RITUXIMAB [Suspect]
     Active Substance: RITUXIMAB
  142. RITUXIMAB [Suspect]
     Active Substance: RITUXIMAB
     Dosage: INTRAVENOUS DRIP
  143. RITUXIMAB [Suspect]
     Active Substance: RITUXIMAB
     Dosage: INTRAVENOUS DRIP
  144. RITUXIMAB [Suspect]
     Active Substance: RITUXIMAB
  145. RITUXIMAB [Suspect]
     Active Substance: RITUXIMAB
     Dosage: INTRAVENOUS DRIP
  146. RITUXIMAB [Suspect]
     Active Substance: RITUXIMAB
     Dosage: ROUTE: UNKNOWN
  147. RITUXIMAB [Suspect]
     Active Substance: RITUXIMAB
     Indication: Rheumatoid arthritis
     Dosage: ROUTE: UNKNOWN
  148. DIETARY SUPPLEMENT\HERBALS [Suspect]
     Active Substance: DIETARY SUPPLEMENT\HERBALS
     Indication: Product used for unknown indication
     Dosage: DOSE FORM: DROPS ORAL, ROUTE: UNKNOWN
  149. DICLOFENAC SODIUM [Suspect]
     Active Substance: DICLOFENAC SODIUM
     Indication: Rheumatoid arthritis
  150. DICLOFENAC SODIUM [Suspect]
     Active Substance: DICLOFENAC SODIUM
     Dosage: ROUTE: UNKNOWN
  151. DICLOFENAC SODIUM [Suspect]
     Active Substance: DICLOFENAC SODIUM
     Dosage: ROUTE: UNKNOWN
  152. DICLOFENAC SODIUM [Suspect]
     Active Substance: DICLOFENAC SODIUM
     Dosage: ROUTE: UNKNOWN
  153. DICLOFENAC SODIUM [Suspect]
     Active Substance: DICLOFENAC SODIUM
     Dosage: ROUTE: OPHTHALMIC
  154. DICLOFENAC SODIUM [Suspect]
     Active Substance: DICLOFENAC SODIUM
     Dosage: ROUTE: OPHTHALMIC
  155. DICLOFENAC SODIUM [Suspect]
     Active Substance: DICLOFENAC SODIUM
     Dosage: ROUTE: UNKNOWN
  156. DICLOFENAC SODIUM [Suspect]
     Active Substance: DICLOFENAC SODIUM
  157. DICLOFENAC SODIUM [Suspect]
     Active Substance: DICLOFENAC SODIUM
  158. DICLOFENAC SODIUM [Suspect]
     Active Substance: DICLOFENAC SODIUM
     Dosage: ROUTE: UNKNOWN
  159. DICLOFENAC SODIUM [Suspect]
     Active Substance: DICLOFENAC SODIUM
     Dosage: ROUTE: UNKNOWN
  160. DICLOFENAC SODIUM [Suspect]
     Active Substance: DICLOFENAC SODIUM
     Dosage: ROUTE: OTHER
  161. DICLOFENAC SODIUM [Suspect]
     Active Substance: DICLOFENAC SODIUM
     Dosage: ROUTE: OPHTHALMIC
  162. DICLOFENAC SODIUM [Suspect]
     Active Substance: DICLOFENAC SODIUM
     Dosage: ROUTE: OPHTHALMIC
  163. HYDROCORTISONE [Suspect]
     Active Substance: HYDROCORTISONE
     Indication: Rheumatoid arthritis
  164. MOXIFLOXACIN HYDROCHLORIDE [Suspect]
     Active Substance: MOXIFLOXACIN HYDROCHLORIDE
     Indication: Product used for unknown indication
     Dosage: DOSE FORM: SOLUTION OPHTHALMIC
  165. STELARA [Suspect]
     Active Substance: USTEKINUMAB
     Indication: Product used for unknown indication
     Dosage: DOSE FORM: SOLUTION SUBCUTANEOUS, ROUTE: UNKNOWN
  166. SULFAMETHOXAZOLE\TRIMETHOPRIM [Suspect]
     Active Substance: SULFAMETHOXAZOLE\TRIMETHOPRIM
     Indication: Product used for unknown indication
  167. SULFAMETHOXAZOLE\TRIMETHOPRIM [Suspect]
     Active Substance: SULFAMETHOXAZOLE\TRIMETHOPRIM
     Dosage: ROUTE: UNKNOWN
  168. SULFASALAZINE [Suspect]
     Active Substance: SULFASALAZINE
     Indication: Rheumatoid arthritis
  169. SULFASALAZINE [Suspect]
     Active Substance: SULFASALAZINE
     Dosage: ROUTE: UNKNOWN
  170. SULFASALAZINE [Suspect]
     Active Substance: SULFASALAZINE
     Dosage: ROUTE: UNKNOWN
  171. SULFASALAZINE [Suspect]
     Active Substance: SULFASALAZINE
     Dosage: ROUTE: UNKNOWN
  172. SULFASALAZINE [Suspect]
     Active Substance: SULFASALAZINE
  173. SULFASALAZINE [Suspect]
     Active Substance: SULFASALAZINE
     Dosage: ROUTE: UNKNOWN
  174. SULFASALAZINE [Suspect]
     Active Substance: SULFASALAZINE
  175. SULFASALAZINE [Suspect]
     Active Substance: SULFASALAZINE
  176. SULFASALAZINE [Suspect]
     Active Substance: SULFASALAZINE
  177. SULFASALAZINE [Suspect]
     Active Substance: SULFASALAZINE
  178. SULFASALAZINE [Suspect]
     Active Substance: SULFASALAZINE
  179. SULFASALAZINE [Suspect]
     Active Substance: SULFASALAZINE
  180. SULFASALAZINE [Suspect]
     Active Substance: SULFASALAZINE
     Dosage: ROUTE: UNKNOWN
  181. SULFASALAZINE [Suspect]
     Active Substance: SULFASALAZINE
  182. SULFASALAZINE [Suspect]
     Active Substance: SULFASALAZINE
     Dosage: ROUTE: UNKNOWN
  183. SULFASALAZINE [Suspect]
     Active Substance: SULFASALAZINE
  184. SULFASALAZINE [Suspect]
     Active Substance: SULFASALAZINE
  185. SULFASALAZINE [Suspect]
     Active Substance: SULFASALAZINE
  186. SULFASALAZINE [Suspect]
     Active Substance: SULFASALAZINE
  187. SULFASALAZINE [Suspect]
     Active Substance: SULFASALAZINE
  188. SULFASALAZINE [Suspect]
     Active Substance: SULFASALAZINE
  189. SULFASALAZINE [Suspect]
     Active Substance: SULFASALAZINE
  190. SULFASALAZINE [Suspect]
     Active Substance: SULFASALAZINE
  191. SULFASALAZINE [Suspect]
     Active Substance: SULFASALAZINE
  192. SULFASALAZINE [Suspect]
     Active Substance: SULFASALAZINE
  193. SULFASALAZINE [Suspect]
     Active Substance: SULFASALAZINE
  194. SULFASALAZINE [Suspect]
     Active Substance: SULFASALAZINE
  195. SULFASALAZINE [Suspect]
     Active Substance: SULFASALAZINE
  196. SULFASALAZINE [Suspect]
     Active Substance: SULFASALAZINE
     Indication: Rheumatoid arthritis
     Dosage: ROUTE: UNKNOWN
  197. TRIAMCINOLONE ACETONIDE [Suspect]
     Active Substance: TRIAMCINOLONE ACETONIDE
     Indication: Rheumatoid arthritis
     Dosage: DOSE FORM: SUSPENSION INTRA- ARTICULAR
  198. VITAMIN C [Suspect]
     Active Substance: ASCORBIC ACID
     Indication: Product used for unknown indication
     Dosage: ROUTE: UNKNOWN
  199. VITAMIN C [Suspect]
     Active Substance: ASCORBIC ACID
     Dosage: ROUTE: UNKNOWN
  200. PREDNISONE [Suspect]
     Active Substance: PREDNISONE
     Indication: Rheumatoid arthritis
  201. XELJANZ [Suspect]
     Active Substance: TOFACITINIB CITRATE
     Indication: Rheumatoid arthritis
     Dosage: ROUTE: UNKNOWN
  202. ADVIL [Suspect]
     Active Substance: IBUPROFEN
     Indication: Product used for unknown indication
     Dosage: ROUTE: UNKNOWN
  203. DICLOFENAC [Suspect]
     Active Substance: DICLOFENAC
     Indication: Product used for unknown indication
     Dosage: DOSE FORM: UNKNOWN, ROUTE: OPHTHALMIC
  204. METHOTREXATE [Suspect]
     Active Substance: METHOTREXATE
     Indication: Rheumatoid arthritis
  205. METHOTREXATE [Suspect]
     Active Substance: METHOTREXATE
  206. METHOTREXATE [Suspect]
     Active Substance: METHOTREXATE
     Dosage: ROUTE: UNKNOWN
  207. METHOTREXATE [Suspect]
     Active Substance: METHOTREXATE
     Dosage: ROUTE: UNKNOWN
  208. METHOTREXATE [Suspect]
     Active Substance: METHOTREXATE
  209. METHOTREXATE [Suspect]
     Active Substance: METHOTREXATE
  210. METHOTREXATE [Suspect]
     Active Substance: METHOTREXATE
  211. METHOTREXATE [Suspect]
     Active Substance: METHOTREXATE
  212. METHOTREXATE [Suspect]
     Active Substance: METHOTREXATE
  213. METHOTREXATE [Suspect]
     Active Substance: METHOTREXATE
  214. METHOTREXATE [Suspect]
     Active Substance: METHOTREXATE
     Dosage: ROUTE: UNKNOWN
  215. METHOTREXATE [Suspect]
     Active Substance: METHOTREXATE
     Dosage: ROUTE: UNKNOWN
  216. METHOTREXATE [Suspect]
     Active Substance: METHOTREXATE
  217. METHOTREXATE [Suspect]
     Active Substance: METHOTREXATE
  218. METHOTREXATE [Suspect]
     Active Substance: METHOTREXATE
     Dosage: ROUTE: UNKNOWN
  219. METHOTREXATE [Suspect]
     Active Substance: METHOTREXATE
  220. METHOTREXATE [Suspect]
     Active Substance: METHOTREXATE
     Dosage: ROUTE: UNKNOWN
  221. METHOTREXATE [Suspect]
     Active Substance: METHOTREXATE
  222. METHOTREXATE [Suspect]
     Active Substance: METHOTREXATE
  223. METHOTREXATE [Suspect]
     Active Substance: METHOTREXATE
  224. METHOTREXATE [Suspect]
     Active Substance: METHOTREXATE
  225. METHOTREXATE [Suspect]
     Active Substance: METHOTREXATE
     Dosage: ROUTE: UNKNOWN
  226. METHOTREXATE [Suspect]
     Active Substance: METHOTREXATE
     Dosage: ROUTE: INTRAVENOUS DRIP
  227. PHTHALYLSULFATHIAZOLE [Suspect]
     Active Substance: PHTHALYLSULFATHIAZOLE
     Indication: Rheumatoid arthritis
  228. PHTHALYLSULFATHIAZOLE [Suspect]
     Active Substance: PHTHALYLSULFATHIAZOLE
  229. PHTHALYLSULFATHIAZOLE [Suspect]
     Active Substance: PHTHALYLSULFATHIAZOLE
     Dosage: ROUTE: UNKNOWN
  230. PHTHALYLSULFATHIAZOLE [Suspect]
     Active Substance: PHTHALYLSULFATHIAZOLE
  231. PHTHALYLSULFATHIAZOLE [Suspect]
     Active Substance: PHTHALYLSULFATHIAZOLE
  232. PHTHALYLSULFATHIAZOLE [Suspect]
     Active Substance: PHTHALYLSULFATHIAZOLE
  233. PHTHALYLSULFATHIAZOLE [Suspect]
     Active Substance: PHTHALYLSULFATHIAZOLE
  234. PHTHALYLSULFATHIAZOLE [Suspect]
     Active Substance: PHTHALYLSULFATHIAZOLE
  235. PHTHALYLSULFATHIAZOLE [Suspect]
     Active Substance: PHTHALYLSULFATHIAZOLE
  236. PHTHALYLSULFATHIAZOLE [Suspect]
     Active Substance: PHTHALYLSULFATHIAZOLE
  237. PHTHALYLSULFATHIAZOLE [Suspect]
     Active Substance: PHTHALYLSULFATHIAZOLE
     Dosage: ROUTE: INTRAVENOUS DRIP
  238. PHTHALYLSULFATHIAZOLE [Suspect]
     Active Substance: PHTHALYLSULFATHIAZOLE
  239. PHTHALYLSULFATHIAZOLE [Suspect]
     Active Substance: PHTHALYLSULFATHIAZOLE
     Dosage: ROUTE: UNKNOWN
  240. PHTHALYLSULFATHIAZOLE [Suspect]
     Active Substance: PHTHALYLSULFATHIAZOLE
     Dosage: ROUTE: INTRAVENOUS DRIP
  241. PHTHALYLSULFATHIAZOLE [Suspect]
     Active Substance: PHTHALYLSULFATHIAZOLE
     Dosage: ROUTE: UNKNOWN
  242. PHTHALYLSULFATHIAZOLE [Suspect]
     Active Substance: PHTHALYLSULFATHIAZOLE
  243. PHTHALYLSULFATHIAZOLE [Suspect]
     Active Substance: PHTHALYLSULFATHIAZOLE
  244. PHTHALYLSULFATHIAZOLE [Suspect]
     Active Substance: PHTHALYLSULFATHIAZOLE
     Dosage: ROUTE: UNKNOWN
  245. PLAQUENIL [Suspect]
     Active Substance: HYDROXYCHLOROQUINE SULFATE
     Indication: Product used for unknown indication
     Dosage: ROUTE: UNKNOWN
  246. PREDNISOLONE [Suspect]
     Active Substance: PREDNISOLONE
     Indication: Product used for unknown indication
     Dosage: ROUTE: UNKNOWN
  247. PREDNISONE [Suspect]
     Active Substance: PREDNISONE
     Indication: Systemic lupus erythematosus
  248. PREDNISONE [Suspect]
     Active Substance: PREDNISONE
     Indication: Synovitis
  249. PREDNISONE [Suspect]
     Active Substance: PREDNISONE
     Indication: Rheumatoid arthritis
  250. PREDNISONE [Suspect]
     Active Substance: PREDNISONE
     Indication: Psoriatic arthropathy
  251. PREDNISONE [Suspect]
     Active Substance: PREDNISONE
     Indication: Pemphigus
  252. PREDNISONE [Suspect]
     Active Substance: PREDNISONE
     Indication: Condition aggravated
  253. PREDNISONE [Suspect]
     Active Substance: PREDNISONE
     Indication: Systemic lupus erythematosus
     Dosage: ROUTE: UNKNOWN
  254. PREDNISONE [Suspect]
     Active Substance: PREDNISONE
     Indication: Synovitis
  255. PREDNISONE [Suspect]
     Active Substance: PREDNISONE
     Indication: Rheumatoid arthritis
     Dosage: ROUTE: UNKNOWN
  256. PREDNISONE [Suspect]
     Active Substance: PREDNISONE
     Indication: Psoriatic arthropathy
     Dosage: ROUTE: UNKNOWN
  257. PREDNISONE [Suspect]
     Active Substance: PREDNISONE
     Indication: Pemphigus
     Dosage: ROUTE: INTRAVENOUS DRIP
  258. PREDNISONE [Suspect]
     Active Substance: PREDNISONE
     Indication: Condition aggravated
  259. PREDNISONE [Suspect]
     Active Substance: PREDNISONE
  260. PREDNISONE [Suspect]
     Active Substance: PREDNISONE
     Dosage: ROUTE: UNKNOWN
  261. PREDNISONE [Suspect]
     Active Substance: PREDNISONE
  262. PREDNISONE [Suspect]
     Active Substance: PREDNISONE
     Dosage: ROUTE: UNKNOWN
  263. PREDNISONE [Suspect]
     Active Substance: PREDNISONE
     Dosage: ROUTE: UNKNOWN
  264. PREDNISONE [Suspect]
     Active Substance: PREDNISONE
     Indication: Product used for unknown indication
     Dosage: ROUTE: UNKNOWN
  265. PSEUDOEPHEDRINE HYDROCHLORIDE [Suspect]
     Active Substance: PSEUDOEPHEDRINE HYDROCHLORIDE
     Indication: Rheumatoid arthritis
     Dosage: ROUTE: UNKNOWN
  266. PSEUDOEPHEDRINE HYDROCHLORIDE [Suspect]
     Active Substance: PSEUDOEPHEDRINE HYDROCHLORIDE
     Dosage: ROUTE: UNKNOWN
  267. PSEUDOEPHEDRINE HYDROCHLORIDE [Suspect]
     Active Substance: PSEUDOEPHEDRINE HYDROCHLORIDE
     Dosage: ROUTE: UNKNOWN
  268. CETIRIZINE HYDROCHLORIDE [Suspect]
     Active Substance: CETIRIZINE HYDROCHLORIDE
     Indication: Urticaria
  269. CETIRIZINE HYDROCHLORIDE [Suspect]
     Active Substance: CETIRIZINE HYDROCHLORIDE
     Indication: Rheumatoid arthritis
     Dosage: ROUTE: UNKNOWN
  270. CETIRIZINE HYDROCHLORIDE [Suspect]
     Active Substance: CETIRIZINE HYDROCHLORIDE
     Dosage: ROUTE: UNKNOWN
  271. CETIRIZINE HYDROCHLORIDE [Suspect]
     Active Substance: CETIRIZINE HYDROCHLORIDE
  272. CETIRIZINE HYDROCHLORIDE [Suspect]
     Active Substance: CETIRIZINE HYDROCHLORIDE
  273. CETIRIZINE HYDROCHLORIDE [Suspect]
     Active Substance: CETIRIZINE HYDROCHLORIDE
     Dosage: ROUTE: UNKNOWN
  274. CETIRIZINE HYDROCHLORIDE [Suspect]
     Active Substance: CETIRIZINE HYDROCHLORIDE
  275. CETIRIZINE HYDROCHLORIDE\PSEUDOEPHEDRINE HYDROCHLORIDE [Suspect]
     Active Substance: CETIRIZINE HYDROCHLORIDE\PSEUDOEPHEDRINE HYDROCHLORIDE
     Indication: Product used for unknown indication
     Dosage: DOSE FROM: TABLET (EXTENDED- RELEASE), ROUTE: UNKNOWN
  276. REMICADE [Suspect]
     Active Substance: INFLIXIMAB
     Indication: Rheumatoid arthritis
  277. REMICADE [Suspect]
     Active Substance: INFLIXIMAB
     Indication: Rheumatoid arthritis
     Dosage: DOSE FORM: POWDER FOR SOLUTION INTRAVENOUS, ROUTE: UNKNOWN
  278. APREMILAST [Suspect]
     Active Substance: APREMILAST
     Indication: Product used for unknown indication
     Dosage: ROUTE: UNKNOWN
  279. DICLOFENAC SODIUM [Suspect]
     Active Substance: DICLOFENAC SODIUM
     Indication: Rheumatoid arthritis
  280. HYDROCORTISONE [Suspect]
     Active Substance: HYDROCORTISONE
     Indication: Rheumatoid arthritis
     Dosage: DOSAGE FROM: UNKNOWN, ROUTE: UNKNOWN
  281. HYDROCORTISONE [Suspect]
     Active Substance: HYDROCORTISONE
     Dosage: DOSAGE FROM: UNKNOWN
  282. HYDROCORTISONE [Suspect]
     Active Substance: HYDROCORTISONE
     Dosage: DOSAGE FROM: UNKNOWN
  283. HYDROCORTISONE [Suspect]
     Active Substance: HYDROCORTISONE
     Dosage: DOSAGE FROM: UNKNOWN, ROUTE: UNKNOWN
  284. HYDROCORTISONE [Suspect]
     Active Substance: HYDROCORTISONE
     Dosage: DOSAGE FROM: UNKNOWN, ROUTE: UNKNOWN
  285. HYDROCORTISONE [Suspect]
     Active Substance: HYDROCORTISONE
     Dosage: DOSAGE FROM: UNKNOWN, ROUTE: UNKNOWN
  286. MYCOPHENOLATE MOFETIL [Suspect]
     Active Substance: MYCOPHENOLATE MOFETIL
     Indication: Product used for unknown indication
     Dosage: ROUTE: UNKNOWN
  287. PANTOPRAZOLE SODIUM [Suspect]
     Active Substance: PANTOPRAZOLE SODIUM
     Indication: Product used for unknown indication
     Dosage: TABLET (DELAYED- RELEASE), ROUTE: UNKNOWN
  288. PANTOPRAZOLE SODIUM [Suspect]
     Active Substance: PANTOPRAZOLE SODIUM
     Indication: Product used for unknown indication
     Dosage: DOSE FORM: UNKNOWN
  289. PANTOPRAZOLE SODIUM [Suspect]
     Active Substance: PANTOPRAZOLE SODIUM
     Dosage: DOSE FORM: UNKNOWN, ROUTE: UNKNOWN
  290. PREGABALIN [Suspect]
     Active Substance: PREGABALIN
     Indication: Product used for unknown indication
     Dosage: ROUTE: UNKNOWN
  291. SIMPONI [Suspect]
     Active Substance: GOLIMUMAB
     Indication: Rheumatoid arthritis
     Dosage: DOSE FORM: SOLUTION SUBCUTANEOUS, ROUTE: UNKNOWN
  292. SIMPONI [Suspect]
     Active Substance: GOLIMUMAB
     Indication: Rheumatoid arthritis
  293. SIMPONI [Suspect]
     Active Substance: GOLIMUMAB
  294. SIMPONI [Suspect]
     Active Substance: GOLIMUMAB
     Dosage: ROUTE: UNKNOWN
  295. SIMPONI [Suspect]
     Active Substance: GOLIMUMAB
  296. SULFAMETHOXAZOLE [Suspect]
     Active Substance: SULFAMETHOXAZOLE
     Indication: Product used for unknown indication
  297. XELJANZ [Suspect]
     Active Substance: TOFACITINIB CITRATE
     Indication: Rheumatoid arthritis
  298. XELJANZ [Suspect]
     Active Substance: TOFACITINIB CITRATE
     Dosage: ROUTE: UNKNOWN
  299. XELJANZ [Suspect]
     Active Substance: TOFACITINIB CITRATE
     Dosage: ROUTE: UNKNOWN
  300. XELJANZ [Suspect]
     Active Substance: TOFACITINIB CITRATE
     Dosage: ROUTE: UNKNOWN
  301. XELJANZ [Suspect]
     Active Substance: TOFACITINIB CITRATE
     Dosage: ROUTE: UNKNOWN
  302. XELJANZ [Suspect]
     Active Substance: TOFACITINIB CITRATE

REACTIONS (12)
  - Helicobacter infection [Fatal]
  - Hepatic enzyme increased [Fatal]
  - Grip strength decreased [Fatal]
  - Hypertension [Fatal]
  - Hip arthroplasty [Fatal]
  - Hand deformity [Fatal]
  - Ill-defined disorder [Fatal]
  - Headache [Fatal]
  - Hypercholesterolaemia [Fatal]
  - Hypoaesthesia [Fatal]
  - Glossodynia [Fatal]
  - Impaired healing [Fatal]
